APPROVED DRUG PRODUCT: VANCOMYCIN HYDROCHLORIDE
Active Ingredient: VANCOMYCIN HYDROCHLORIDE
Strength: EQ 1GM BASE/VIAL
Dosage Form/Route: INJECTABLE;INJECTION
Application: A205780 | Product #002 | TE Code: AP
Applicant: EUGIA PHARMA SPECIALITIES LTD
Approved: Mar 31, 2016 | RLD: No | RS: No | Type: RX